FAERS Safety Report 10079336 (Version 1)
Quarter: 2014Q2

REPORT INFORMATION
  Report Type: Spontaneous
  Country: US (occurrence: None)
  Receive Date: 20140414
  Receipt Date: 20140414
  Transmission Date: 20141212
  Serious: Yes (Disabling)
  Sender: FDA-Public Use
  Company Number: None

PATIENT
  Age: 66 Year
  Sex: Female
  Weight: 68.04 kg

DRUGS (6)
  1. METFORMIN [Suspect]
     Indication: DIABETES MELLITUS
     Dosage: BY MOUTH
     Route: 048
     Dates: start: 20140218, end: 20140222
  2. PROPRANOLOL [Concomitant]
  3. CLONAZEIME [Concomitant]
  4. LEVOTHYROXINE [Concomitant]
  5. LISINOPRIL [Concomitant]
  6. METFORMINE [Concomitant]

REACTIONS (7)
  - Tremor [None]
  - Hypoaesthesia [None]
  - Diarrhoea [None]
  - Hyperhidrosis [None]
  - Tremor [None]
  - Burning sensation [None]
  - Insomnia [None]
